FAERS Safety Report 26162520 (Version 1)
Quarter: 2025Q4

REPORT INFORMATION
  Report Type: Spontaneous
  Country: CN (occurrence: CN)
  Receive Date: 20251216
  Receipt Date: 20251216
  Transmission Date: 20260119
  Serious: Yes (Hospitalization)
  Sender: BAYER HEALTHCARE PHARMACEUTICALS INC.
  Company Number: CN-BAYER-2025A163374

PATIENT
  Age: 50 Year
  Sex: Male
  Weight: 66 kg

DRUGS (2)
  1. ULTRAVIST [Suspect]
     Active Substance: IOPROMIDE
     Indication: Computerised tomogram kidney
     Dosage: 100 ML, ONCE
     Route: 042
     Dates: start: 20240509, end: 20240509
  2. ULTRAVIST [Suspect]
     Active Substance: IOPROMIDE
     Indication: Nephrolithiasis

REACTIONS (2)
  - Rash erythematous [Recovered/Resolved]
  - Respiratory tract oedema [Recovered/Resolved]

NARRATIVE: CASE EVENT DATE: 20240509
